FAERS Safety Report 23091199 (Version 2)
Quarter: 2023Q4

REPORT INFORMATION
  Report Type: Report from Study
  Country: PL (occurrence: PL)
  Receive Date: 20231020
  Receipt Date: 20231102
  Transmission Date: 20240110
  Serious: Yes (Hospitalization)
  Sender: FDA-Public Use
  Company Number: PL-JNJFOC-20231025508

PATIENT
  Age: 72 Year
  Sex: Female
  Weight: 62 kg

DRUGS (14)
  1. TALQUETAMAB [Suspect]
     Active Substance: TALQUETAMAB
     Indication: Plasma cell myeloma
     Dosage: MOST RECENT DOSE ON 25-SEP-2023
     Route: 058
     Dates: start: 20230912, end: 20230912
  2. TALQUETAMAB [Suspect]
     Active Substance: TALQUETAMAB
     Dosage: MOST RECENT DOSE ON 25-SEP-2023
     Route: 058
     Dates: start: 20230914, end: 20230914
  3. TALQUETAMAB [Suspect]
     Active Substance: TALQUETAMAB
     Dosage: MOST RECENT DOSE ON 25-SEP-2023
     Route: 058
     Dates: start: 20230918, end: 20230918
  4. TALQUETAMAB [Suspect]
     Active Substance: TALQUETAMAB
     Dosage: MOST RECENT DOSE ON 25-SEP-2023
     Route: 058
     Dates: start: 20230925
  5. DARATUMUMAB [Suspect]
     Active Substance: DARATUMUMAB
     Indication: Plasma cell myeloma
     Dosage: MOST RECENT DOSE 03-OCT-2023 15ML
     Route: 058
     Dates: start: 20230911
  6. BETAXOLOL HYDROCHLORIDE [Concomitant]
     Active Substance: BETAXOLOL HYDROCHLORIDE
     Indication: Hypertension
     Route: 048
     Dates: start: 20150101
  7. CONTROLOC [Concomitant]
     Active Substance: PANTOPRAZOLE SODIUM
     Indication: Gastrointestinal disorder therapy
     Route: 048
     Dates: start: 20190101
  8. ACYCLOVIR [Concomitant]
     Active Substance: ACYCLOVIR
     Indication: Infection prophylaxis
     Route: 048
     Dates: start: 20200101
  9. ASPIRIN [Concomitant]
     Active Substance: ASPIRIN
     Indication: Thrombosis prophylaxis
     Route: 048
     Dates: start: 20200501
  10. MEGACE [Concomitant]
     Active Substance: MEGESTROL ACETATE
     Indication: Oropharyngeal pain
     Route: 048
     Dates: start: 20230901
  11. MEGACE [Concomitant]
     Active Substance: MEGESTROL ACETATE
     Indication: Dry mouth
  12. LANOLIN\ZINC OXIDE [Concomitant]
     Active Substance: LANOLIN\ZINC OXIDE
     Indication: Skin exfoliation
     Route: 050
     Dates: start: 20230901
  13. BENZYDAMINE [Concomitant]
     Active Substance: BENZYDAMINE
     Indication: Oropharyngeal pain
     Route: 048
     Dates: start: 20230901
  14. BENZYDAMINE [Concomitant]
     Active Substance: BENZYDAMINE
     Indication: Dry mouth

REACTIONS (1)
  - Acute kidney injury [Not Recovered/Not Resolved]

NARRATIVE: CASE EVENT DATE: 20231011
